FAERS Safety Report 8072943-1 (Version None)
Quarter: 2012Q1

REPORT INFORMATION
  Report Type: 
  Country: None (occurrence: None)
  Receive Date: 20120126
  Receipt Date: 20120117
  Transmission Date: 20120608
  Serious: Yes (Hospitalization, Other)
  Sender: FDA-Public Use
  Company Number: US-BAYER-2011-037971

PATIENT
  Age: 41 Year
  Sex: Female
  Weight: 98.866 kg

DRUGS (14)
  1. YASMIN [Suspect]
     Indication: CONTRACEPTION
     Dosage: UNK
     Dates: start: 20050701, end: 20070601
  2. YAZ [Suspect]
     Indication: CONTRACEPTION
     Dosage: UNK
     Dates: start: 20070831, end: 20070901
  3. YAZ [Suspect]
     Indication: POLYCYSTIC OVARIES
  4. RANITIDINE [Concomitant]
     Indication: DYSPEPSIA
     Dosage: 1 U, QD
     Route: 048
     Dates: start: 20070603, end: 20070626
  5. YAZ [Suspect]
     Indication: MENSTRUATION IRREGULAR
  6. OXYCODONE HCL AND ACETAMINOPHEN [Concomitant]
     Indication: PAIN
     Dosage: 1 U, TID
     Route: 048
     Dates: start: 20070608, end: 20070613
  7. PROTONIX [Concomitant]
     Indication: GASTROOESOPHAGEAL REFLUX DISEASE
     Dosage: 1 U, QD
     Route: 048
     Dates: start: 20070601, end: 20070626
  8. URSODIOL [Concomitant]
     Indication: CHOLELITHIASIS
     Dosage: 1 U, TID
     Route: 048
     Dates: start: 20070618, end: 20080617
  9. METFORMIN HCL [Concomitant]
     Indication: POLYCYSTIC OVARIES
     Dosage: 1 U, TID
     Route: 048
     Dates: start: 20050601, end: 20081101
  10. ATROVENT [Concomitant]
     Dosage: UNK
     Route: 055
     Dates: start: 20070401, end: 20070701
  11. PROPOXYPHENE HCL AND ACETAMINOPHEN [Concomitant]
     Indication: PAIN
     Dosage: 1 U, QID
     Route: 048
     Dates: start: 20070612, end: 20070622
  12. SPIRONOLACTONE [Concomitant]
     Indication: BLOOD TESTOSTERONE INCREASED
     Dosage: 100 MG, QD
     Route: 048
     Dates: start: 20060501, end: 20100201
  13. YASMIN [Suspect]
     Indication: POLYCYSTIC OVARIES
  14. YASMIN [Suspect]
     Indication: MENSTRUATION IRREGULAR

REACTIONS (14)
  - CHOLECYSTITIS ACUTE [None]
  - NAUSEA [None]
  - PNEUMONIA [None]
  - DYSPEPSIA [None]
  - DIARRHOEA [None]
  - THROMBOPHLEBITIS SUPERFICIAL [None]
  - EMOTIONAL DISTRESS [None]
  - ANXIETY [None]
  - BILIARY COLIC [None]
  - CHOLELITHIASIS [None]
  - PAIN [None]
  - INJURY [None]
  - FLATULENCE [None]
  - ABDOMINAL DISTENSION [None]
